FAERS Safety Report 4326282-2 (Version None)
Quarter: 2004Q1

REPORT INFORMATION
  Report Type: 
  Country: None (occurrence: None)
  Receive Date: 20040329
  Receipt Date: 20040121
  Transmission Date: 20041129
  Serious: Yes (Death, Life-Threatening, Hospitalization, Disabling)
  Sender: FDA-Public Use
  Company Number: BE-MERCK-0401BEL00014

PATIENT
  Age: 61 Year
  Sex: Male
  Weight: 74 kg

DRUGS (10)
  1. CANCIDAS [Suspect]
     Indication: BRONCHOPULMONARY ASPERGILLOSIS
     Route: 041
     Dates: start: 20031215, end: 20031215
  2. CANCIDAS [Suspect]
     Route: 041
     Dates: start: 20031216, end: 20031218
  3. NEORAL [Concomitant]
     Indication: IMMUNOSUPPRESSION
     Route: 048
     Dates: start: 20030801, end: 20031218
  4. MEDROL [Concomitant]
     Indication: IMMUNOSUPPRESSION
     Route: 048
     Dates: start: 20020101, end: 20031217
  5. VORICONAZOLE [Concomitant]
     Indication: BRONCHOPULMONARY ASPERGILLOSIS
     Route: 041
     Dates: start: 20031205, end: 20031205
  6. VORICONAZOLE [Concomitant]
     Route: 048
     Dates: start: 20031206, end: 20031215
  7. AMPHOTERICIN B [Concomitant]
     Indication: ANTIFUNGAL PROPHYLAXIS
     Route: 055
     Dates: start: 20031126, end: 20031204
  8. AMPHOTERICIN B [Concomitant]
     Route: 055
     Dates: start: 20031205, end: 20031215
  9. ABELCET [Concomitant]
     Indication: BRONCHOPULMONARY ASPERGILLOSIS
     Route: 041
     Dates: start: 20031201, end: 20031205
  10. IMURAN [Concomitant]
     Indication: IMMUNOSUPPRESSION
     Route: 048
     Dates: start: 20030801, end: 20031204

REACTIONS (4)
  - BRONCHOPULMONARY ASPERGILLOSIS [None]
  - LUNG INFECTION PSEUDOMONAL [None]
  - MULTI-ORGAN FAILURE [None]
  - SEPTIC SHOCK [None]
